FAERS Safety Report 7754154-X (Version None)
Quarter: 2011Q3

REPORT INFORMATION
  Report Type: 
  Country: None (occurrence: None)
  Receive Date: 20110913
  Receipt Date: 20110830
  Transmission Date: 20111222
  Serious: Yes (Other)
  Sender: FDA-Public Use
  Company Number: TPA2011A05358

PATIENT
  Age: 65 Year
  Sex: Male

DRUGS (1)
  1. ACTOS [Suspect]
     Dosage: 45 MG,  1 IN 1 D, PER ORAL
     Route: 048
     Dates: start: 20081101

REACTIONS (1)
  - BLADDER CANCER [None]
